FAERS Safety Report 24405212 (Version 1)
Quarter: 2024Q4

REPORT INFORMATION
  Report Type: Report from Study
  Country: DE (occurrence: DE)
  Receive Date: 20241007
  Receipt Date: 20241007
  Transmission Date: 20250115
  Serious: No
  Sender: ROCHE
  Company Number: DE-ROCHE-3570254

PATIENT
  Age: 68 Year
  Sex: Male

DRUGS (1)
  1. OBINUTUZUMAB [Suspect]
     Active Substance: OBINUTUZUMAB
     Indication: Follicular lymphoma
     Dosage: FREQUENCY TEXT:DAY 1, DAY 8 AND DAY 15 REPEAT DAY 21
     Route: 042

REACTIONS (2)
  - Off label use [Unknown]
  - No adverse event [Unknown]
